FAERS Safety Report 7280041-X (Version None)
Quarter: 2011Q1

REPORT INFORMATION
  Report Type: 
  Country: None (occurrence: None)
  Receive Date: 20110125
  Receipt Date: 20110111
  Transmission Date: 20110831
  Serious: Yes (Hospitalization)
  Sender: FDA-Public Use
  Company Number: CIO11000619

PATIENT

DRUGS (1)
  1. PEPTO-BISMO, VERSION/FLAVOR UNKNOWN (BISMUTH SUBSALICYLATE 262 OR 525 [Suspect]
     Dosage: ORAL
     Route: 048

REACTIONS (3)
  - UNEVALUABLE EVENT [None]
  - SUICIDE ATTEMPT [None]
  - INTENTIONAL DRUG MISUSE [None]
